FAERS Safety Report 4944930-0 (Version None)
Quarter: 2006Q1

REPORT INFORMATION
  Report Type: 
  Country: None (occurrence: None)
  Receive Date: 20060123
  Receipt Date: 20041129
  Transmission Date: 20060701
  Serious: Yes (Death)
  Sender: FDA-Public Use
  Company Number: PHEH2004US12729

PATIENT
  Age: 76 Year
  Sex: Male

DRUGS (2)
  1. SANDOSTATIN LAR [Suspect]
     Indication: HEPATIC CANCER METASTATIC
     Dates: start: 20030701, end: 20041001
  2. CHOLESTEROL- AND TRIGLYCERIDE REDUCERS (NO INGREDIENTS/SUBSTANCES) [Concomitant]

REACTIONS (1)
  - HEPATIC CANCER METASTATIC [None]
